FAERS Safety Report 5750812-7 (Version None)
Quarter: 2008Q2

REPORT INFORMATION
  Report Type: 
  Country: None (occurrence: None)
  Receive Date: 20080528
  Receipt Date: 20080522
  Transmission Date: 20081010
  Serious: Yes (Hospitalization, Other)
  Sender: FDA-Public Use
  Company Number: A0729233A

PATIENT
  Age: 59 Year
  Sex: Male

DRUGS (7)
  1. ADVAIR DISKUS 100/50 [Suspect]
     Indication: ASTHMA
     Dosage: 1PUFF TWICE PER DAY
     Route: 055
     Dates: start: 20010101
  2. ALBUTEROL [Concomitant]
  3. TYLENOL [Concomitant]
  4. SPIRONOLACTONE [Concomitant]
  5. ACETAZOLAMIDE [Concomitant]
  6. LISINOPRIL [Concomitant]
  7. BACITRACIN [Concomitant]

REACTIONS (4)
  - CARDIAC FAILURE CONGESTIVE [None]
  - MEDICATION ERROR [None]
  - OEDEMA PERIPHERAL [None]
  - RESPIRATORY DISORDER [None]
